FAERS Safety Report 24724535 (Version 2)
Quarter: 2025Q1

REPORT INFORMATION
  Report Type: Report from Study
  Country: US (occurrence: US)
  Receive Date: 20241212
  Receipt Date: 20250113
  Transmission Date: 20250409
  Serious: Yes (Other)
  Sender: DECIPHERA PHARMACEUTICALS
  Company Number: US-DECIPHERA PHARMACEUTICALS LLC-2024US001013

PATIENT
  Age: 68 Year
  Sex: Male

DRUGS (1)
  1. QINLOCK [Suspect]
     Active Substance: RIPRETINIB
     Indication: Gastrointestinal stromal tumour
     Dosage: 150 MILLIGRAM, QD

REACTIONS (7)
  - Prostate cancer [Unknown]
  - Gastric cancer [Unknown]
  - Haematuria [Unknown]
  - Bladder cancer [Unknown]
  - Dysuria [Unknown]
  - Alopecia [Unknown]
  - Fatigue [Unknown]
